FAERS Safety Report 7111996-1 (Version None)
Quarter: 2010Q4

REPORT INFORMATION
  Report Type: 
  Country: None (occurrence: None)
  Receive Date: 20101119
  Receipt Date: 20101115
  Transmission Date: 20110411
  Serious: No
  Sender: FDA-Public Use
  Company Number: US-PFIZER INC-2010148782

PATIENT
  Sex: Female
  Weight: 89 kg

DRUGS (3)
  1. CHANTIX [Suspect]
     Indication: SMOKING CESSATION THERAPY
     Dosage: 0.5 MG, DAILY
     Route: 048
     Dates: start: 20100801, end: 20100101
  2. CHANTIX [Suspect]
     Dosage: 1 MG, 2X/DAY
     Route: 048
     Dates: start: 20100101
  3. IBUPROFEN [Concomitant]
     Indication: ARTHRITIS
     Dosage: UNK

REACTIONS (2)
  - NASOPHARYNGITIS [None]
  - SLEEP DISORDER [None]
